FAERS Safety Report 7730114-X (Version None)
Quarter: 2011Q3

REPORT INFORMATION
  Report Type: 
  Country: None (occurrence: None)
  Receive Date: 20110906
  Receipt Date: 20110829
  Transmission Date: 20111222
  Serious: Yes (Hospitalization)
  Sender: FDA-Public Use
  Company Number: PHHY2011NL77030

PATIENT
  Sex: Female

DRUGS (9)
  1. ZOMETA [Suspect]
     Dosage: 4 MG/5 ML,1X PER 28 DAYS
     Dates: start: 20110721
  2. ARIMIDEX [Concomitant]
     Dosage: UNK
     Route: 065
  3. PLAVIX [Concomitant]
     Dosage: 75 MG,
     Route: 065
  4. CORTICOSTEROIDS [Concomitant]
     Dosage: UNK UKN, UNK
  5. ZOMETA [Suspect]
     Dosage: 4 MG/5 ML,1X PER 28 DAYS
     Dates: start: 20110829
  6. EFFEXOR [Concomitant]
     Dosage: UNK UKN, UNK
     Route: 065
  7. TRAMADOL HYDROCHLORIDE [Concomitant]
     Dosage: 2X50MG
     Route: 065
  8. ZOMETA [Suspect]
     Indication: BREAST CANCER METASTATIC
     Dosage: 4 MG/5 ML,1X PER 28 DAYS
     Dates: start: 20110328
  9. ACETOSAL [Concomitant]
     Dosage: 80 MG, QD

REACTIONS (7)
  - DYSPNOEA [None]
  - BURSITIS [None]
  - FATIGUE [None]
  - SLEEP DISORDER [None]
  - CARDIAC FAILURE [None]
  - MUSCULOSKELETAL PAIN [None]
  - PAIN IN EXTREMITY [None]
